FAERS Safety Report 6384254-0 (Version None)
Quarter: 2009Q4

REPORT INFORMATION
  Report Type: 
  Country: None (occurrence: None)
  Receive Date: 20091001
  Receipt Date: 20090918
  Transmission Date: 20100525
  Serious: Yes (Other)
  Sender: FDA-Public Use
  Company Number: US-PFIZER INC-2009245987

PATIENT
  Age: 38 Year
  Sex: Male
  Weight: 66.667 kg

DRUGS (8)
  1. NEURONTIN [Suspect]
     Indication: DEPRESSION
     Dosage: 2400 MG, UNK
     Dates: start: 20020101, end: 20040101
  2. NEURONTIN [Suspect]
     Indication: ANXIETY
  3. NEURONTIN [Suspect]
     Indication: HEADACHE
  4. BUSPIRONE [Concomitant]
     Indication: DEPRESSION
     Dosage: 20 MG, 3X/DAY
     Route: 048
     Dates: start: 20010101
  5. BUSPIRONE [Concomitant]
     Indication: ANXIETY
  6. BUPROPION [Concomitant]
     Indication: DEPRESSION
     Dosage: 200 MG, 2X/DAY
  7. BUPROPION [Concomitant]
     Indication: ANXIETY
  8. ATENOLOL [Concomitant]
     Indication: HYPERTENSION
     Dosage: 100 MG, 1X/DAY

REACTIONS (13)
  - ANXIETY [None]
  - CONFUSIONAL STATE [None]
  - DELIRIUM [None]
  - DEPERSONALISATION [None]
  - DEPRESSION [None]
  - DEREALISATION [None]
  - DISTURBANCE IN ATTENTION [None]
  - DRUG ABUSE [None]
  - DRUG DEPENDENCE [None]
  - HEADACHE [None]
  - IMPAIRED WORK ABILITY [None]
  - MEMORY IMPAIRMENT [None]
  - PARAESTHESIA [None]
